FAERS Safety Report 22297133 (Version 2)
Quarter: 2023Q2

REPORT INFORMATION
  Report Type: Spontaneous
  Country: US (occurrence: US)
  Receive Date: 20230509
  Receipt Date: 20230512
  Transmission Date: 20230722
  Serious: Yes (Other)
  Sender: FDA-Public Use
  Company Number: US-SANOFI-01602166

PATIENT
  Age: 66 Year
  Sex: Female

DRUGS (1)
  1. LANTUS SOLOSTAR [Suspect]
     Active Substance: INSULIN GLARGINE
     Indication: Diabetes mellitus
     Dosage: UNK (15-35 UNITS)
     Dates: start: 2018

REACTIONS (9)
  - Cerebrovascular accident [Unknown]
  - Cerebral haemorrhage [Unknown]
  - Diabetes mellitus inadequate control [Unknown]
  - Migraine [Unknown]
  - Weight decreased [Unknown]
  - Injection site pain [Unknown]
  - Glycosylated haemoglobin increased [Unknown]
  - Inappropriate schedule of product administration [Unknown]
  - Device issue [Unknown]

NARRATIVE: CASE EVENT DATE: 20220501
